FAERS Safety Report 15034854 (Version 5)
Quarter: 2019Q4

REPORT INFORMATION
  Report Type: Spontaneous
  Country: SK (occurrence: SK)
  Receive Date: 20180620
  Receipt Date: 20191212
  Transmission Date: 20200122
  Serious: Yes (Other)
  Sender: FDA-Public Use
  Company Number: SK-ROCHE-2142509

PATIENT
  Age: 60 Year
  Sex: Male

DRUGS (9)
  1. CYCLOPHOSPHAMIDE. [Suspect]
     Active Substance: CYCLOPHOSPHAMIDE
     Indication: MANTLE CELL LYMPHOMA
     Dosage: 2 CYCLES?MOST RECENT DOSE:/SEP/2015
     Route: 065
     Dates: start: 201507
  2. RITUXIMAB. [Suspect]
     Active Substance: RITUXIMAB
     Dosage: 2 CYCLES
     Route: 065
  3. PREDNISONE. [Suspect]
     Active Substance: PREDNISONE
     Indication: MANTLE CELL LYMPHOMA
     Dosage: 2 CYCLES
     Route: 065
     Dates: start: 201507, end: 201509
  4. ETOPOSIDE. [Suspect]
     Active Substance: ETOPOSIDE
     Indication: MANTLE CELL LYMPHOMA
     Dosage: 2 CYCLES
     Route: 065
     Dates: start: 201507, end: 201509
  5. RITUXIMAB. [Suspect]
     Active Substance: RITUXIMAB
     Indication: MANTLE CELL LYMPHOMA
     Dosage: 2 CYCLES
     Route: 065
     Dates: start: 201507, end: 201509
  6. PREDNISONE. [Suspect]
     Active Substance: PREDNISONE
     Dosage: CYCLIC
     Route: 065
     Dates: start: 2012
  7. CYCLOPHOSPHAMIDE. [Suspect]
     Active Substance: CYCLOPHOSPHAMIDE
     Route: 065
     Dates: start: 2012
  8. VINCRISTINE [Suspect]
     Active Substance: VINCRISTINE
     Indication: MANTLE CELL LYMPHOMA
     Dosage: 2 CYCLES
     Route: 065
     Dates: start: 201507, end: 201509
  9. VINCRISTINE [Suspect]
     Active Substance: VINCRISTINE
     Route: 065
     Dates: start: 2012

REACTIONS (9)
  - Infection [Unknown]
  - Angina pectoris [Unknown]
  - Stomatitis [Unknown]
  - Palpitations [Unknown]
  - Constipation [Unknown]
  - Product use in unapproved indication [Unknown]
  - Tonsillitis [Unknown]
  - Off label use [Unknown]
  - Sinusitis [Unknown]
